FAERS Safety Report 17117636 (Version 1)
Quarter: 2019Q4

REPORT INFORMATION
  Report Type: Report from Study
  Country: US (occurrence: US)
  Receive Date: 20191205
  Receipt Date: 20191205
  Transmission Date: 20200122
  Serious: Yes (Death)
  Sender: FDA-Public Use
  Company Number: US-COHERUS BIOSCIENCES, INC-2019US006797

PATIENT

DRUGS (1)
  1. UDENYCA [Suspect]
     Active Substance: PEGFILGRASTIM-CBQV
     Dosage: UNK
     Dates: start: 20190528, end: 20190613

REACTIONS (1)
  - Death [Fatal]

NARRATIVE: CASE EVENT DATE: 20190627
